FAERS Safety Report 21028209 (Version 2)
Quarter: 2022Q3

REPORT INFORMATION
  Report Type: Report from Study
  Country: JP (occurrence: JP)
  Receive Date: 20220630
  Receipt Date: 20220808
  Transmission Date: 20221027
  Serious: Yes (Other)
  Sender: FDA-Public Use
  Company Number: JP-NOVARTISPH-NVSJ2022JP092651

PATIENT
  Age: 62 Year
  Sex: Female

DRUGS (2)
  1. TABRECTA [Suspect]
     Active Substance: CAPMATINIB
     Indication: Non-small cell lung cancer recurrent
     Dosage: 800 MG
     Route: 048
     Dates: start: 20220406, end: 20220430
  2. TABRECTA [Suspect]
     Active Substance: CAPMATINIB
     Dosage: 600 MG
     Route: 048
     Dates: start: 20220603, end: 20220615

REACTIONS (4)
  - Hepatic function abnormal [Recovered/Resolved]
  - Rash [Unknown]
  - Pyrexia [Unknown]
  - Drug intolerance [Unknown]

NARRATIVE: CASE EVENT DATE: 20220419
